FAERS Safety Report 9069929 (Version 1)
Quarter: 2013Q1

REPORT INFORMATION
  Report Type: Report from Study
  Country: US (occurrence: US)
  Receive Date: 20130131
  Receipt Date: 20130131
  Transmission Date: 20140127
  Serious: No
  Sender: FDA-Public Use
  Company Number: US-ABBOTT-12P-163-1006787-00

PATIENT
  Sex: Female
  Weight: 52.66 kg

DRUGS (5)
  1. HUMIRA [Suspect]
     Indication: CROHN^S DISEASE
     Dosage: ONE TIME DOSE
     Route: 058
     Dates: start: 20120926, end: 20120926
  2. HUMIRA [Suspect]
     Dosage: ONE TIME DOSE
     Route: 058
     Dates: start: 20121010, end: 20121010
  3. HUMIRA [Suspect]
     Dosage: SECOND 80MG DOSE IN ERROR
     Route: 058
     Dates: start: 20121024, end: 20121024
  4. HUMIRA [Suspect]
     Route: 058
     Dates: start: 20121107
  5. PENTASA [Concomitant]
     Indication: CROHN^S DISEASE

REACTIONS (1)
  - Drug administration error [Recovered/Resolved]
